FAERS Safety Report 7282891-2 (Version None)
Quarter: 2011Q1

REPORT INFORMATION
  Report Type: 
  Country: None (occurrence: None)
  Receive Date: 20110209
  Receipt Date: 20110207
  Transmission Date: 20110831
  Serious: Yes (Other)
  Sender: FDA-Public Use
  Company Number: US-PFIZER INC-2011027404

PATIENT
  Sex: Male
  Weight: 77.098 kg

DRUGS (4)
  1. ACETYLSALICYLIC ACID [Concomitant]
     Dosage: 81 MG, 1X/DAY
     Route: 048
  2. INSULIN [Concomitant]
     Indication: DIABETES MELLITUS
     Dosage: UNK
  3. ALPRAZOLAM [Suspect]
     Indication: DEPRESSION
     Dosage: 0.5 MG, 3X/DAY
     Route: 048
     Dates: start: 20110205, end: 20110206
  4. LISINOPRIL [Concomitant]
     Indication: HYPERTENSION
     Dosage: 40 MG, 1X/DAY
     Route: 048

REACTIONS (4)
  - SUICIDAL IDEATION [None]
  - MOOD SWINGS [None]
  - AGGRESSION [None]
  - ABNORMAL BEHAVIOUR [None]
